FAERS Safety Report 10457504 (Version 1)
Quarter: 2014Q3

REPORT INFORMATION
  Report Type: Spontaneous
  Country: BR (occurrence: BR)
  Receive Date: 20140916
  Receipt Date: 20140916
  Transmission Date: 20150326
  Serious: Yes (Other)
  Sender: FDA-Public Use
  Company Number: BR-PFIZER INC-2014254669

PATIENT
  Age: 81 Year
  Sex: Female
  Weight: 74.3 kg

DRUGS (3)
  1. CELEBRA [Suspect]
     Active Substance: CELECOXIB
     Indication: PAIN
     Dosage: 2X/DAY
     Route: 048
     Dates: start: 20020912
  2. EXELON [Concomitant]
     Active Substance: RIVASTIGMINE TARTRATE
     Indication: DEMENTIA ALZHEIMER^S TYPE
     Dosage: 1 TO 2X/DAY
     Dates: start: 2010
  3. RIVOTRIL [Concomitant]
     Active Substance: CLONAZEPAM
     Indication: ANTIDEPRESSANT THERAPY
     Dosage: 1 TO 2X/DAY
     Dates: start: 2004

REACTIONS (2)
  - Fall [Unknown]
  - Femur fracture [Unknown]

NARRATIVE: CASE EVENT DATE: 20100814
